FAERS Safety Report 4714407-6 (Version None)
Quarter: 2005Q3

REPORT INFORMATION
  Report Type: 
  Country: None (occurrence: None)
  Receive Date: 20050714
  Receipt Date: 20050708
  Transmission Date: 20060218
  Serious: Yes (Death)
  Sender: FDA-Public Use
  Company Number: ES-GLAXOSMITHKLINE-B0387481A

PATIENT
  Age: 68 Year
  Sex: Male

DRUGS (4)
  1. AUGMENTIN '125' [Suspect]
     Indication: BRONCHITIS CHRONIC
     Route: 048
     Dates: start: 20041021, end: 20041101
  2. CASODEX [Suspect]
     Indication: PROSTATE CANCER
     Dosage: 50MG PER DAY
     Route: 048
     Dates: start: 20040901, end: 20041115
  3. TRIPTORELIN [Suspect]
     Indication: PROSTATE CANCER
     Dosage: 11MG PER DAY
     Route: 030
     Dates: start: 20040928
  4. CEMIDON [Suspect]
     Indication: BLADDER CANCER
     Route: 048
     Dates: start: 20040901, end: 20041101

REACTIONS (2)
  - DEATH [None]
  - HEPATITIS [None]
